FAERS Safety Report 6502832-2 (Version None)
Quarter: 2009Q4

REPORT INFORMATION
  Report Type: 
  Country: None (occurrence: None)
  Receive Date: 20091217
  Receipt Date: 20091204
  Transmission Date: 20100525
  Serious: Yes (Hospitalization)
  Sender: FDA-Public Use
  Company Number: CA-ELI_LILLY_AND_COMPANY-CA200912001561

PATIENT
  Age: 86 Year
  Sex: Female

DRUGS (6)
  1. FORTEO [Suspect]
     Indication: OSTEOPOROSIS
     Dosage: 20 UG, DAILY (1/D)
     Dates: start: 20090309
  2. EMTEC-30 [Concomitant]
  3. IRON [Concomitant]
  4. INDAPAMIDE [Concomitant]
  5. SYNTHROID [Concomitant]
  6. GABAPENTIN [Concomitant]

REACTIONS (1)
  - ANAEMIA [None]
